FAERS Safety Report 10784921 (Version 1)
Quarter: 2015Q1

REPORT INFORMATION
  Report Type: Spontaneous
  Country: US (occurrence: US)
  Receive Date: 20150211
  Receipt Date: 20150211
  Transmission Date: 20150721
  Serious: No
  Sender: FDA-Public Use
  Company Number: US-GLAXOSMITHKLINE-A1073880A

PATIENT

DRUGS (2)
  1. WELLBUTRIN XL PROLONGED-RELEASE TABLET [Concomitant]
  2. LAMICTAL [Suspect]
     Active Substance: LAMOTRIGINE
     Indication: PRODUCT USED FOR UNKNOWN INDICATION
     Dosage: 100 MG TABLETS AND 25 MG TABLETS (AS OF 30 DEC 2010)UNKNOWN DOSING
     Route: 065
     Dates: start: 20100310

REACTIONS (2)
  - Performance status decreased [Unknown]
  - Drug dose omission [Unknown]
